FAERS Safety Report 6806307-2 (Version None)
Quarter: 2010Q2

REPORT INFORMATION
  Report Type: 
  Country: None (occurrence: None)
  Receive Date: 20100629
  Receipt Date: 20080515
  Transmission Date: 20101027
  Serious: No
  Sender: FDA-Public Use
  Company Number: US-PFIZER INC-2007108821

PATIENT
  Sex: Male
  Weight: 100 kg

DRUGS (5)
  1. VIAGRA [Suspect]
     Indication: ERECTILE DYSFUNCTION
     Dates: start: 20071201
  2. METFORMIN HCL [Concomitant]
     Indication: DIABETES MELLITUS
  3. PRAVASTATIN SODIUM [Concomitant]
     Indication: BLOOD CHOLESTEROL INCREASED
  4. LISINOPRIL [Concomitant]
     Indication: HYPERTENSION
  5. ACTOS [Concomitant]

REACTIONS (1)
  - DRUG INEFFECTIVE [None]
